FAERS Safety Report 18222577 (Version 1)
Quarter: 2020Q3

REPORT INFORMATION
  Report Type: Spontaneous
  Country: US (occurrence: US)
  Receive Date: 20200901
  Receipt Date: 20200901
  Transmission Date: 20201103
  Serious: Yes (Life-Threatening, Other)
  Sender: FDA-Public Use
  Company Number: None

PATIENT
  Age: 60 Year
  Sex: Female
  Weight: 94.8 kg

DRUGS (8)
  1. MULTI VITAMINS [Concomitant]
     Active Substance: VITAMINS
  2. METFORMIN [Concomitant]
     Active Substance: METFORMIN HYDROCHLORIDE
  3. LASIX [Concomitant]
     Active Substance: FUROSEMIDE
  4. ACARBOSE. [Concomitant]
     Active Substance: ACARBOSE
  5. BENICAR [Concomitant]
     Active Substance: OLMESARTAN MEDOXOMIL
  6. GUANFICINE 2MG [Concomitant]
     Active Substance: GUANFACINE
  7. IBUPROFEN. [Concomitant]
     Active Substance: IBUPROFEN
  8. GADOLINIUM [Suspect]
     Active Substance: GADOLINIUM

REACTIONS (5)
  - Swelling [None]
  - Contrast media reaction [None]
  - Dyspnoea [None]
  - Nausea [None]
  - Documented hypersensitivity to administered product [None]
